FAERS Safety Report 24959530 (Version 1)
Quarter: 2025Q1

REPORT INFORMATION
  Report Type: Spontaneous
  Country: FR (occurrence: FR)
  Receive Date: 20250212
  Receipt Date: 20250212
  Transmission Date: 20250409
  Serious: Yes (Hospitalization)
  Sender: ACCORD
  Company Number: None

PATIENT
  Age: 48 Year
  Sex: Female
  Weight: 46.7 kg

DRUGS (3)
  1. DAPTOMYCIN [Suspect]
     Active Substance: DAPTOMYCIN
     Indication: Bacteraemia
     Dates: start: 20241006, end: 20241024
  2. ERTAPENEM [Suspect]
     Active Substance: ERTAPENEM
     Indication: Bacteraemia
     Dates: start: 20241002, end: 20241027
  3. RIFAMPIN [Suspect]
     Active Substance: RIFAMPIN
     Indication: Bacteraemia
     Dates: start: 20241015, end: 20241027

REACTIONS (1)
  - Encephalopathy [Recovering/Resolving]

NARRATIVE: CASE EVENT DATE: 20241024
